FAERS Safety Report 22943968 (Version 2)
Quarter: 2023Q4

REPORT INFORMATION
  Report Type: Spontaneous
  Country: US (occurrence: US)
  Receive Date: 20230914
  Receipt Date: 20231213
  Transmission Date: 20240110
  Serious: Yes (Other)
  Sender: FDA-Public Use
  Company Number: US-BRISTOL-MYERS SQUIBB COMPANY-2023-130225

PATIENT
  Age: 60 Year
  Sex: Female

DRUGS (2)
  1. OPDIVO [Suspect]
     Active Substance: NIVOLUMAB
     Indication: Hepatocellular carcinoma
     Dosage: DOSE : OPDIVO: 50 MG  YERVOY: 150 MG;     FREQ : OPDIVO: EVERY 4 WEEKS?YERVOY: EVERY 4 WEEKS
     Route: 042
     Dates: end: 20230814
  2. YERVOY [Suspect]
     Active Substance: IPILIMUMAB
     Indication: Hepatocellular carcinoma
     Route: 042
     Dates: end: 20230814

REACTIONS (2)
  - Drug ineffective [Unknown]
  - Off label use [Unknown]
